FAERS Safety Report 8519419 (Version 5)
Quarter: 2013Q2

REPORT INFORMATION
  Report Type: Spontaneous
  Country: US (occurrence: US)
  Receive Date: 20120418
  Receipt Date: 20130515
  Transmission Date: 20140414
  Serious: Yes (Life-Threatening, Hospitalization, Other)
  Sender: FDA-Public Use
  Company Number: US-ASTRAZENECA-2012SE22049

PATIENT
  Age: 59 Year
  Sex: Female
  Weight: 90.7 kg

DRUGS (2)
  1. NEXIUM [Suspect]
     Indication: GASTROOESOPHAGEAL REFLUX DISEASE
     Route: 048
  2. PERCOCET [Concomitant]
     Indication: ANALGESIC THERAPY

REACTIONS (27)
  - Gastrooesophageal reflux disease [Unknown]
  - Upper gastrointestinal haemorrhage [Unknown]
  - Renal failure [Unknown]
  - Pharyngeal haemorrhage [Unknown]
  - Spleen disorder [Unknown]
  - Apparent death [Unknown]
  - Ulcer [Unknown]
  - Procedural complication [Unknown]
  - Haematemesis [Unknown]
  - Gastrointestinal haemorrhage [Unknown]
  - Haemorrhage [Unknown]
  - Autoimmune disorder [Unknown]
  - Platelet count decreased [Unknown]
  - Ear pain [Unknown]
  - Pneumonia [Unknown]
  - Nasopharyngitis [Unknown]
  - Pharyngeal erosion [Unknown]
  - Asthenia [Unknown]
  - Aphagia [Unknown]
  - Speech disorder [Unknown]
  - Musculoskeletal disorder [Unknown]
  - Disturbance in attention [Unknown]
  - Weight increased [Unknown]
  - Hepatitis C [Unknown]
  - Diarrhoea [Unknown]
  - Intentional drug misuse [Unknown]
  - Drug dose omission [Unknown]
